FAERS Safety Report 19923868 (Version 9)
Quarter: 2022Q1

REPORT INFORMATION
  Report Type: Report from Study
  Country: CL (occurrence: None)
  Receive Date: 20211006
  Receipt Date: 20220321
  Transmission Date: 20220423
  Serious: Yes (Hospitalization)
  Sender: FDA-Public Use
  Company Number: CL-EISAI MEDICAL RESEARCH-EC-2021-100754

PATIENT
  Age: 63 Year
  Sex: Female
  Weight: 66.7 kg

DRUGS (9)
  1. LENVATINIB [Suspect]
     Active Substance: LENVATINIB
     Indication: Bile duct cancer
     Dosage: STARTING DOSE: 20 MILLIGRAM (FLUCTUATED DOSAGE)
     Route: 048
     Dates: start: 20210609, end: 20210927
  2. LENVATINIB [Suspect]
     Active Substance: LENVATINIB
     Route: 048
     Dates: start: 20210928, end: 20210928
  3. PEMBROLIZUMAB [Suspect]
     Active Substance: PEMBROLIZUMAB
     Indication: Bile duct cancer
     Route: 041
     Dates: start: 20210609, end: 20210819
  4. PEMBROLIZUMAB [Suspect]
     Active Substance: PEMBROLIZUMAB
     Route: 041
     Dates: start: 20210909, end: 20210909
  5. OMEPRAZOLE [Concomitant]
     Active Substance: OMEPRAZOLE
     Dates: start: 20210528
  6. ACETAMINOPHEN [Concomitant]
     Active Substance: ACETAMINOPHEN
     Dates: start: 20210609
  7. LEVOTHYROXINE SODIUM [Concomitant]
     Active Substance: LEVOTHYROXINE SODIUM
     Dates: start: 20210701
  8. CIRUELAX [PRUNUS DOMESTICA;SENNA ALEXANDRINA] [Concomitant]
     Dates: start: 20210709
  9. LOSARTAN [Concomitant]
     Active Substance: LOSARTAN
     Dates: start: 20210721

REACTIONS (2)
  - Duodenal perforation [Recovered/Resolved]
  - Pyrexia [Recovered/Resolved]

NARRATIVE: CASE EVENT DATE: 20210929
